FAERS Safety Report 17991135 (Version 1)
Quarter: 2020Q3

REPORT INFORMATION
  Report Type: Spontaneous
  Country: RU (occurrence: RU)
  Receive Date: 20200707
  Receipt Date: 20200707
  Transmission Date: 20201103
  Serious: Yes (Death, Hospitalization, Other)
  Sender: FDA-Public Use
  Company Number: RU-ASTRAZENECA-2020SE84632

PATIENT
  Age: 33 Year
  Sex: Female

DRUGS (8)
  1. LYNPARZA [Suspect]
     Active Substance: OLAPARIB
     Indication: BREAST CANCER FEMALE
     Route: 048
     Dates: start: 202001
  2. CALCEMIN [Concomitant]
     Active Substance: BORON\PREVITAMIN D3\ZINC
  3. LYNPARZA [Suspect]
     Active Substance: OLAPARIB
     Indication: METASTASES TO CENTRAL NERVOUS SYSTEM
     Route: 048
     Dates: start: 202001
  4. LYNPARZA [Suspect]
     Active Substance: OLAPARIB
     Indication: METASTASES TO BONE
     Route: 048
     Dates: start: 202001
  5. CARDIOMAGNYL [Concomitant]
     Active Substance: ASPIRIN\MAGNESIUM HYDROXIDE
  6. ENALAPRIL [Concomitant]
     Active Substance: ENALAPRIL
  7. LYNPARZA [Suspect]
     Active Substance: OLAPARIB
     Indication: METASTASES TO LUNG
     Route: 048
     Dates: start: 202001
  8. TRAMADOL. [Concomitant]
     Active Substance: TRAMADOL

REACTIONS (4)
  - Hydrocephalus [Fatal]
  - Brain oedema [Fatal]
  - Loss of consciousness [Unknown]
  - Headache [Unknown]

NARRATIVE: CASE EVENT DATE: 202005
